FAERS Safety Report 5234739-5 (Version None)
Quarter: 2007Q1

REPORT INFORMATION
  Report Type: 
  Country: None (occurrence: None)
  Receive Date: 20070209
  Receipt Date: 20070130
  Transmission Date: 20070707
  Serious: Yes (Hospitalization, Other)
  Sender: FDA-Public Use
  Company Number: US-PFIZER INC-2007007906

PATIENT
  Age: 63 Year
  Sex: Male
  Weight: 64.4 kg

DRUGS (1)
  1. SUTENT [Suspect]
     Indication: LUNG NEOPLASM MALIGNANT
     Dates: start: 20061020, end: 20061201

REACTIONS (1)
  - CONVULSION [None]
